FAERS Safety Report 11221784 (Version 1)
Quarter: 2015Q2

REPORT INFORMATION
  Report Type: Spontaneous
  Country: US (occurrence: US)
  Receive Date: 20150626
  Receipt Date: 20150626
  Transmission Date: 20150821
  Serious: Yes (Death, Hospitalization, Other)
  Sender: FDA-Public Use
  Company Number: US-ROXANE LABORATORIES, INC.-2015-RO-01036RO

PATIENT
  Age: 66 Year
  Sex: Male

DRUGS (2)
  1. MYCOPHENOLATE MOFETIL. [Suspect]
     Active Substance: MYCOPHENOLATE MOFETIL
     Indication: LIVER TRANSPLANT
     Route: 065
  2. TACROLIMUS. [Suspect]
     Active Substance: TACROLIMUS
     Indication: LIVER TRANSPLANT
     Route: 065

REACTIONS (6)
  - Human herpes virus 8 test positive [Unknown]
  - Histoplasmosis disseminated [Unknown]
  - Spindle cell sarcoma [Unknown]
  - Multi-organ failure [Fatal]
  - Liver abscess [Unknown]
  - Embolic cerebral infarction [Recovered/Resolved with Sequelae]
